FAERS Safety Report 21774094 (Version 4)
Quarter: 2023Q1

REPORT INFORMATION
  Report Type: Report from Study
  Country: US (occurrence: US)
  Receive Date: 20221223
  Receipt Date: 20230130
  Transmission Date: 20230418
  Serious: Yes (Other)
  Sender: FDA-Public Use
  Company Number: US-GILEAD-2022-0610643

PATIENT
  Age: 0 Year
  Sex: Male
  Weight: 2.358 kg

DRUGS (10)
  1. EMTRICITABINE\RILPIVIRINE HYDROCHLORIDE\TENOFOVIR ALAFENAMIDE FUMARATE [Suspect]
     Active Substance: EMTRICITABINE\RILPIVIRINE HYDROCHLORIDE\TENOFOVIR ALAFENAMIDE FUMARATE
     Indication: HIV infection
     Dosage: 1 DOSAGE FORM, QD, TRANSPLACENTAL
     Route: 065
     Dates: start: 20220321, end: 20221204
  2. PROGESTERONE [Concomitant]
     Active Substance: PROGESTERONE
     Route: 064
  3. MINERALS\VITAMINS [Concomitant]
     Active Substance: MINERALS\VITAMINS
     Route: 064
  4. IRON [Concomitant]
     Active Substance: IRON
     Route: 064
  5. VALTREX [Concomitant]
     Active Substance: VALACYCLOVIR HYDROCHLORIDE
     Route: 064
  6. METOCLOPRAMIDE [Concomitant]
     Active Substance: METOCLOPRAMIDE
     Route: 064
  7. ALBUTEROL SULFATE [Concomitant]
     Active Substance: ALBUTEROL SULFATE
     Route: 064
  8. ASPIRIN [Concomitant]
     Active Substance: ASPIRIN
     Route: 064
  9. CEPHALEXIN [Concomitant]
     Active Substance: CEPHALEXIN
     Route: 064
  10. CEFUROXIME [Concomitant]
     Active Substance: CEFUROXIME
     Route: 064

REACTIONS (2)
  - Hypoacusis [Not Recovered/Not Resolved]
  - Foetal exposure during pregnancy [Recovered/Resolved]

NARRATIVE: CASE EVENT DATE: 20220321
